FAERS Safety Report 16154608 (Version 3)
Quarter: 2019Q3

REPORT INFORMATION
  Report Type: Spontaneous
  Country: PT (occurrence: ES)
  Receive Date: 20190403
  Receipt Date: 20190701
  Transmission Date: 20191004
  Serious: Yes (Other)
  Sender: FDA-Public Use
  Company Number: PT-SUNOVION-2019SUN001338

PATIENT

DRUGS (2)
  1. ZEBINIX [Suspect]
     Active Substance: ESLICARBAZEPINE ACETATE
     Dosage: 1/2 800 MG TABLET, IN THE MORNING AFTER BREAKFAST
     Route: 048
     Dates: start: 201902
  2. ZEBINIX [Suspect]
     Active Substance: ESLICARBAZEPINE ACETATE
     Indication: EPILEPSY
     Dosage: 1/2 800 MG TABLET, AT NIGHT AFTER DINNER
     Route: 048
     Dates: start: 2019

REACTIONS (13)
  - Abulia [Recovered/Resolved]
  - Apathy [Recovered/Resolved]
  - Dysphoria [Recovered/Resolved]
  - Confusional state [Recovering/Resolving]
  - Memory impairment [Recovered/Resolved]
  - Anterograde amnesia [Recovered/Resolved]
  - Fatigue [Recovering/Resolving]
  - Dizziness [Recovering/Resolving]
  - Depressed level of consciousness [Recovering/Resolving]
  - Anxiety [Recovering/Resolving]
  - Amnesia [Recovered/Resolved]
  - Hypersomnia [Recovered/Resolved]
  - Somnolence [Recovering/Resolving]

NARRATIVE: CASE EVENT DATE: 201902
